FAERS Safety Report 14823729 (Version 1)
Quarter: 2018Q2

REPORT INFORMATION
  Report Type: Spontaneous
  Country: FR (occurrence: FR)
  Receive Date: 20180428
  Receipt Date: 20180428
  Transmission Date: 20180711
  Serious: Yes (Other)
  Sender: FDA-Public Use
  Company Number: FR-AUROBINDO-AUR-APL-2018-022666

PATIENT
  Age: 10 Year
  Sex: Female
  Weight: 27 kg

DRUGS (6)
  1. SUFENTANIL [Suspect]
     Active Substance: SUFENTANIL
     Indication: ANAESTHESIA
     Dosage: UNK
     Route: 042
     Dates: start: 20180327
  2. IBUPROFENE [Suspect]
     Active Substance: IBUPROFEN
     Indication: PROCEDURAL PAIN
     Dosage: 1 DF TOTAL
     Route: 048
     Dates: start: 20180329
  3. CEFAZOLINE MYLAN [Suspect]
     Active Substance: CEFAZOLIN SODIUM
     Indication: PROPHYLAXIS
     Dosage: 1 DF TOTAL
     Route: 042
     Dates: start: 20180327
  4. PROPOFOL. [Suspect]
     Active Substance: PROPOFOL
     Indication: ANAESTHESIA
     Dosage: UNK
     Route: 042
     Dates: start: 20180327
  5. NALBUPHINE [Suspect]
     Active Substance: NALBUPHINE
     Indication: PROCEDURAL PAIN
     Dosage: 5 MILLIGRAM, 1 PRN
     Route: 042
     Dates: start: 20180327, end: 20180328
  6. PARACETAMOL [Suspect]
     Active Substance: ACETAMINOPHEN
     Indication: PROCEDURAL PAIN
     Dosage: 300 MILLIGRAM, FOUR TIMES/DAY
     Route: 048
     Dates: start: 20180327, end: 20180328

REACTIONS (1)
  - Rash papular [Recovered/Resolved]

NARRATIVE: CASE EVENT DATE: 20180329
